FAERS Safety Report 8971081 (Version 1)
Quarter: 2012Q4

REPORT INFORMATION
  Report Type: 
  Country: US (occurrence: US)
  Receive Date: 20121218
  Receipt Date: 20121218
  Transmission Date: 20130627
  Serious: Yes (Other)
  Sender: FDA-Public Use
  Company Number: PHEH2012US024639

PATIENT
  Age: 59 Year
  Sex: Male
  Weight: 74.83 kg

DRUGS (1)
  1. GILENYA [Suspect]
     Indication: MULTIPLE SCLEROSIS
     Dosage: 0.5 mg, QD
     Route: 048
     Dates: start: 20111215

REACTIONS (5)
  - Blindness [Recovering/Resolving]
  - Visual acuity reduced [Recovering/Resolving]
  - Vision blurred [Not Recovered/Not Resolved]
  - Pruritus [Recovering/Resolving]
  - Eczema [Not Recovered/Not Resolved]
